FAERS Safety Report 10540230 (Version 3)
Quarter: 2014Q4

REPORT INFORMATION
  Report Type: Spontaneous
  Country: FR (occurrence: None)
  Receive Date: 20141022
  Receipt Date: 20141118
  Transmission Date: 20150529
  Serious: Yes (Other)
  Sender: FDA-Public Use
  Company Number: 2014FR008935

PATIENT
  Age: 57 Year
  Sex: Male

DRUGS (1)
  1. ELIGARD [Suspect]
     Active Substance: LEUPROLIDE ACETATE
     Indication: PROSTATE CANCER
     Dosage: EVERY 6 MONTHS
     Dates: start: 20130815

REACTIONS (3)
  - Pain in extremity [None]
  - Musculoskeletal disorder [None]
  - Arthritis [None]

NARRATIVE: CASE EVENT DATE: 2014
